FAERS Safety Report 23593634 (Version 1)
Quarter: 2024Q1

REPORT INFORMATION
  Report Type: Spontaneous
  Country: DE (occurrence: DE)
  Receive Date: 20240304
  Receipt Date: 20240304
  Transmission Date: 20240410
  Serious: Yes (Death, Hospitalization, Other)
  Sender: FDA-Public Use
  Company Number: None

PATIENT
  Age: 86 Year
  Sex: Male
  Weight: 96 kg

DRUGS (1)
  1. IMBRUVICA [Suspect]
     Active Substance: IBRUTINIB
     Indication: Mantle cell lymphoma recurrent
     Dosage: 1 TABLETTE MORGENS
     Route: 048
     Dates: start: 20220728, end: 20220807

REACTIONS (27)
  - Fatigue [Fatal]
  - Groin pain [Fatal]
  - Pneumonitis [Fatal]
  - General physical health deterioration [Fatal]
  - Pulmonary embolism [Fatal]
  - Communication disorder [Fatal]
  - Disturbance in attention [Fatal]
  - Arthralgia [Fatal]
  - Headache [Fatal]
  - Malaise [Fatal]
  - Arthralgia [Fatal]
  - White blood cell count decreased [Fatal]
  - Illusion [Fatal]
  - Bronchitis [Fatal]
  - Mental impairment [Fatal]
  - Pyrexia [Fatal]
  - Hypoaesthesia [Fatal]
  - Paraesthesia [Fatal]
  - Arthritis [Fatal]
  - Enterococcal infection [Fatal]
  - Unresponsive to stimuli [Fatal]
  - Candida infection [Fatal]
  - Pain in extremity [Fatal]
  - Immunodeficiency [Fatal]
  - Confusional state [Fatal]
  - Chills [Fatal]
  - Cerebrovascular accident [Fatal]

NARRATIVE: CASE EVENT DATE: 20220101
